FAERS Safety Report 8616952-X (Version None)
Quarter: 2012Q3

REPORT INFORMATION
  Report Type: 
  Country: None (occurrence: None)
  Receive Date: 20120823
  Receipt Date: 20120810
  Transmission Date: 20120928
  Serious: No
  Sender: FDA-Public Use
  Company Number: US-009507513-1208USA005410

PATIENT

DRUGS (4)
  1. OMEGA-3-ACID ETHYL ESTERS [Concomitant]
  2. NUVARING [Suspect]
     Indication: CONTRACEPTION
     Dosage: UNK
     Route: 067
     Dates: start: 20120101
  3. VITAMINS (UNSPECIFIED) [Concomitant]
  4. VITAMIN D [Concomitant]

REACTIONS (2)
  - DYSMENORRHOEA [None]
  - METRORRHAGIA [None]
